FAERS Safety Report 6444788-7 (Version None)
Quarter: 2009Q4

REPORT INFORMATION
  Report Type: 
  Country: None (occurrence: None)
  Receive Date: 20091118
  Receipt Date: 20091104
  Transmission Date: 20100525
  Serious: Yes (Other)
  Sender: FDA-Public Use
  Company Number: PHHY2009BR48587

PATIENT
  Sex: Male

DRUGS (1)
  1. DIOVAN AMLO FIX [Suspect]
     Dosage: UNK
     Dates: start: 20090501

REACTIONS (3)
  - ANURIA [None]
  - BLOOD PRESSURE DECREASED [None]
  - FLUID RETENTION [None]
